FAERS Safety Report 5822443-1 (Version None)
Quarter: 2008Q3

REPORT INFORMATION
  Report Type: 
  Country: None (occurrence: None)
  Receive Date: 20080725
  Receipt Date: 20080303
  Transmission Date: 20090109
  Serious: No
  Sender: FDA-Public Use
  Company Number: US-AMGEN-KDL268204

PATIENT
  Sex: Female
  Weight: 90.8 kg

DRUGS (9)
  1. PROCRIT [Suspect]
     Indication: ANAEMIA
     Route: 058
     Dates: start: 20070717
  2. AVANDIA [Concomitant]
     Dates: end: 20080304
  3. GLYBURIDE [Concomitant]
     Dates: start: 20080304
  4. ATENOLOL [Concomitant]
  5. BENICAR [Concomitant]
  6. GEMFIBROZIL [Concomitant]
     Dates: end: 20080304
  7. SIMVASTATIN [Concomitant]
     Dates: start: 20080304
  8. NEURONTIN [Concomitant]
  9. GLUCOSAMINE [Concomitant]

REACTIONS (1)
  - DIZZINESS [None]
